FAERS Safety Report 22588429 (Version 2)
Quarter: 2023Q2

REPORT INFORMATION
  Report Type: Spontaneous
  Country: JP (occurrence: JP)
  Receive Date: 20230612
  Receipt Date: 20230614
  Transmission Date: 20230722
  Serious: Yes (Hospitalization, Other)
  Sender: FDA-Public Use
  Company Number: JP-ASTELLAS-2023JP006764

PATIENT
  Age: 81 Year
  Sex: Male

DRUGS (3)
  1. PADCEV [Suspect]
     Active Substance: ENFORTUMAB VEDOTIN-EJFV
     Indication: Transitional cell carcinoma
     Dosage: UNK UNK, UNKNOWN FREQ.
     Route: 041
     Dates: start: 20230213
  2. PADCEV [Suspect]
     Active Substance: ENFORTUMAB VEDOTIN-EJFV
     Dosage: 1.0 MG/KG, ADMINISTERED FOR 1 WEEK, WITH REST FOR 1 WEEK
     Route: 041
  3. PADCEV [Suspect]
     Active Substance: ENFORTUMAB VEDOTIN-EJFV
     Dosage: 1.0 MG/KG, ADMINISTERED FOR 3 CONSECUTIVE WEEKS, WITHDRAWAL FOR THE 4TH WEEK
     Route: 041

REACTIONS (1)
  - Febrile neutropenia [Not Recovered/Not Resolved]
